FAERS Safety Report 4949359-7 (Version None)
Quarter: 2006Q1

REPORT INFORMATION
  Report Type: 
  Country: None (occurrence: None)
  Receive Date: 20060315
  Receipt Date: 20060227
  Transmission Date: 20060701
  Serious: Yes (Other)
  Sender: FDA-Public Use
  Company Number: US200602001343

PATIENT
  Age: 47 Year
  Sex: Female
  Weight: 99.8 kg

DRUGS (11)
  1. XIGRIS [Suspect]
     Indication: SEPSIS
     Dosage: 24 UG/KG/HR, INTRAVENOUS
     Route: 042
     Dates: start: 20060119
  2. FENTANYL [Concomitant]
  3. INSULIN HUMAN (INSULIN HUMAN PROINSULIN 2 UNKNOWN FORMULATION) [Concomitant]
  4. LEVOPHED [Concomitant]
  5. ATIVAN [Concomitant]
  6. VASOPRESSIN AND ANALOGUES [Concomitant]
  7. PROPOFOL [Concomitant]
  8. FAMOTIDINE (FAMOTIDINE0 [Concomitant]
  9. HEPARIN SODIUM (HEPARIN SODIUM UNKNOWN FORMULATION) [Concomitant]
  10. CIPROFLOXACIN [Concomitant]
  11. ALLOPURINOL [Concomitant]

REACTIONS (6)
  - CATHETER RELATED INFECTION [None]
  - DRUG TOXICITY [None]
  - HEPARIN-INDUCED THROMBOCYTOPENIA [None]
  - HYPERPYREXIA [None]
  - PNEUMONIA [None]
  - THROMBOCYTOPENIA [None]
